FAERS Safety Report 9928173 (Version 1)
Quarter: 2014Q1

REPORT INFORMATION
  Report Type: Spontaneous
  Country: US (occurrence: None)
  Receive Date: 20140226
  Receipt Date: 20140226
  Transmission Date: 20141002
  Serious: Yes (Other)
  Sender: FDA-Public Use
  Company Number: None

PATIENT
  Age: 51 Year
  Sex: Female
  Weight: 61.24 kg

DRUGS (1)
  1. ESCITALOPRAM [Suspect]
     Indication: DEPRESSION
     Dosage: 1 PILL?AT BEDTIME
     Dates: start: 20130901, end: 20140225

REACTIONS (4)
  - Weight increased [None]
  - Depression [None]
  - Night sweats [None]
  - Insomnia [None]
